FAERS Safety Report 24589316 (Version 1)
Quarter: 2024Q4

REPORT INFORMATION
  Report Type: Spontaneous
  Country: US (occurrence: None)
  Receive Date: 20241106
  Receipt Date: 20241106
  Transmission Date: 20250114
  Serious: Yes (Hospitalization)
  Sender: Public
  Company Number: None

PATIENT
  Age: 58 Year
  Sex: Male

DRUGS (1)
  1. ATORVASTATIN CALCIUM [Suspect]
     Active Substance: ATORVASTATIN CALCIUM
     Indication: Transient ischaemic attack
     Dosage: FREQUENCY : DAILY;?
     Route: 048

REACTIONS (3)
  - Myopathy [None]
  - Myositis [None]
  - Rhabdomyolysis [None]

NARRATIVE: CASE EVENT DATE: 20240809
